FAERS Safety Report 22010301 (Version 1)
Quarter: 2023Q1

REPORT INFORMATION
  Report Type: Spontaneous
  Country: RU (occurrence: None)
  Receive Date: 20230220
  Receipt Date: 20230220
  Transmission Date: 20230418
  Serious: Yes (Other)
  Sender: FDA-Public Use
  Company Number: RU-ROCHE-3285328

PATIENT
  Age: 63 Year
  Sex: Female

DRUGS (5)
  1. PERTUZUMAB [Suspect]
     Active Substance: PERTUZUMAB
     Indication: HER2 positive breast cancer
     Route: 042
     Dates: start: 20210302, end: 202106
  2. PERTUZUMAB [Suspect]
     Active Substance: PERTUZUMAB
     Dosage: TARGET THERAPY
     Route: 042
     Dates: start: 20210708
  3. TRASTUZUMAB [Suspect]
     Active Substance: TRASTUZUMAB
     Indication: HER2 positive breast cancer
     Route: 042
     Dates: start: 20210302, end: 202106
  4. TRASTUZUMAB [Suspect]
     Active Substance: TRASTUZUMAB
     Dosage: TARGET THERAPY
     Route: 042
     Dates: start: 20210708
  5. DOCETAXEL [Suspect]
     Active Substance: DOCETAXEL
     Indication: HER2 positive breast cancer
     Route: 065
     Dates: start: 20210302, end: 202106

REACTIONS (2)
  - Central nervous system lesion [Unknown]
  - Haemangioma [Unknown]
